FAERS Safety Report 8310765-4 (Version None)
Quarter: 2012Q2

REPORT INFORMATION
  Report Type: 
  Country: None (occurrence: None)
  Receive Date: 20120425
  Receipt Date: 20120416
  Transmission Date: 20120825
  Serious: Yes (Other)
  Sender: FDA-Public Use
  Company Number: US-ASTRAZENECA-2012SE20965

PATIENT
  Age: 62 Year
  Sex: Female
  Weight: 58.5 kg

DRUGS (10)
  1. CELEXA [Concomitant]
  2. FISH OIL [Concomitant]
  3. CRESTOR [Suspect]
     Indication: BLOOD CHOLESTEROL INCREASED
     Route: 048
  4. CRESTOR [Suspect]
     Route: 048
     Dates: start: 20120314
  5. PLAVIX [Concomitant]
  6. TRILEPTAL [Concomitant]
  7. ISOSORBIDE DINITRATE [Concomitant]
  8. ASPIRIN [Concomitant]
  9. CALCIUM [Concomitant]
  10. MULTI-VITAMIN [Concomitant]

REACTIONS (1)
  - SALIVARY GLAND NEOPLASM [None]
